FAERS Safety Report 9920802 (Version 5)
Quarter: 2014Q3

REPORT INFORMATION
  Report Type: Report from Study
  Country: US (occurrence: US)
  Receive Date: 20140224
  Receipt Date: 20140905
  Transmission Date: 20150326
  Serious: Yes (Hospitalization, Other)
  Sender: FDA-Public Use
  Company Number: US-BRISTOL-MYERS SQUIBB COMPANY-17029083

PATIENT
  Age: 72 Year
  Sex: Male
  Weight: 83.6 kg

DRUGS (29)
  1. ALEVE [Concomitant]
     Active Substance: NAPROXEN SODIUM
     Indication: PAIN
     Dosage: PRN
     Route: 048
     Dates: start: 20120822, end: 20120927
  2. AMBIEN [Concomitant]
     Active Substance: ZOLPIDEM TARTRATE
     Indication: INSOMNIA
     Dosage: 5 MG, INTERMITTENT
     Route: 048
     Dates: start: 20121006, end: 20121006
  3. FERROUS SULFATE [Concomitant]
     Active Substance: FERROUS SULFATE\FERROUS SULFATE, DRIED
     Dosage: 325 MG, TID
     Route: 048
  4. MIRALAX [Concomitant]
     Active Substance: POLYETHYLENE GLYCOL 3350
     Indication: CONSTIPATION
     Dosage: AS NEEDED
     Route: 048
  5. AMPICILLIN [Concomitant]
     Active Substance: AMPICILLIN
     Dosage: INJECTION
  6. SIMVASTATIN. [Concomitant]
     Active Substance: SIMVASTATIN
     Dosage: 20 MG, QD
  7. ASPIRIN. [Concomitant]
     Active Substance: ASPIRIN
     Dosage: 81 MG, QD
  8. NYSTATIN. [Concomitant]
     Active Substance: NYSTATIN
     Indication: ORAL CANDIDIASIS
     Dosage: 1DF= 100,000 UNITS/ML, 5MLX4 TIMES PER DAY X 7 DAYS
     Route: 048
  9. TAMSULOSIN [Concomitant]
     Active Substance: TAMSULOSIN
     Dosage: ALSO 0.4 MG CAPSULE 2TABS/DAY
     Route: 048
  10. FLOMAX [Concomitant]
     Active Substance: TAMSULOSIN HYDROCHLORIDE
     Dosage: CAPS
  11. AMOXICILLIN. [Concomitant]
     Active Substance: AMOXICILLIN
     Indication: UPPER-AIRWAY COUGH SYNDROME
     Dosage: 1000 MG, BID
     Route: 048
     Dates: start: 20120922, end: 20120930
  12. OXYCONTIN [Concomitant]
     Active Substance: OXYCODONE HYDROCHLORIDE
     Dosage: EXT. RELEASE, TITRATE DOWN AS TOLERATED
     Route: 048
  13. PANTOPRAZOLE [Concomitant]
     Active Substance: PANTOPRAZOLE SODIUM
     Dosage: 40 MG, QD
  14. ZOFRAN [Concomitant]
     Active Substance: ONDANSETRON HYDROCHLORIDE
     Indication: NAUSEA
     Dosage: 4 MG, PRN
     Route: 042
     Dates: start: 20121005, end: 20121005
  15. SENNA [Concomitant]
     Active Substance: SENNA LEAF\SENNOSIDES\SENNOSIDES A AND B
     Indication: CONSTIPATION
     Dosage: AS NEEDED
     Route: 048
  16. MORPHINE [Concomitant]
     Active Substance: MORPHINE
     Indication: PAIN
     Dosage: 5MG/ML AS NEEDED
  17. NIVOLUMAB [Suspect]
     Active Substance: NIVOLUMAB
     Indication: MALIGNANT MELANOMA
     Dosage: DOSAGE:1MG/KG;LAST DOSE 13NOV12
     Route: 042
     Dates: start: 20120928
  18. PREDNISONE. [Concomitant]
     Active Substance: PREDNISONE
     Dosage: 1 DF=(5 MG TABLET) 1.5 TABLET PER DAY
     Route: 048
  19. SOLU-MEDROL [Concomitant]
     Active Substance: METHYLPREDNISOLONE SODIUM SUCCINATE
     Indication: ADRENAL INSUFFICIENCY
     Dosage: 1 MG/KG, INTERMITTENT
     Route: 042
     Dates: start: 20121006, end: 20121007
  20. CEFTRIAXONE. [Concomitant]
     Active Substance: CEFTRIAXONE
     Indication: BLOOD CULTURE POSITIVE
     Dosage: UNK
     Route: 042
     Dates: start: 20121020, end: 20121022
  21. OXYCODONE [Concomitant]
     Active Substance: OXYCODONE
     Indication: PAIN
     Dosage: 10MG MILD PAIN, 15MG MOD.PAIN, 20MG SEVERE PAIN, AS NEEDED
     Route: 048
  22. SYNTHROID [Concomitant]
     Active Substance: LEVOTHYROXINE SODIUM
     Dosage: 75 ?G, QD
     Route: 048
  23. COLACE [Concomitant]
     Active Substance: DOCUSATE SODIUM
     Dosage: 100 MG, BID
     Route: 048
  24. HEPARIN [Concomitant]
     Active Substance: HEPARIN SODIUM
     Dosage: 1 DF=5000 UNITS/ML
     Route: 058
  25. IPILIMUMAB [Suspect]
     Active Substance: IPILIMUMAB
     Indication: MALIGNANT MELANOMA
  26. FAMOTIDINE. [Concomitant]
     Active Substance: FAMOTIDINE
     Dosage: 40 MG, QD
  27. SINUTAB SINUS MAXIMUM STRENGTH [Concomitant]
     Active Substance: ACETAMINOPHEN\PHENYLEPHRINE HYDROCHLORIDE
  28. ACETAMINOPHEN. [Concomitant]
     Active Substance: ACETAMINOPHEN
     Indication: HEADACHE
     Dosage: 650 MG, PRN
     Route: 048
     Dates: start: 20121005, end: 20121005
  29. MULTIVITAMINS [Concomitant]
     Active Substance: VITAMINS
     Dosage: 1 DF=1 TAB
     Route: 048

REACTIONS (7)
  - Hypophysitis [Recovered/Resolved]
  - Sepsis [Recovered/Resolved]
  - Abdominal pain [Recovered/Resolved]
  - Arthralgia [Recovered/Resolved]
  - Pyrexia [Recovered/Resolved]
  - Device related infection [Recovered/Resolved]
  - Anaemia [Recovered/Resolved]

NARRATIVE: CASE EVENT DATE: 20121005
